FAERS Safety Report 23201776 (Version 1)
Quarter: 2023Q4

REPORT INFORMATION
  Report Type: Spontaneous
  Country: GR (occurrence: GR)
  Receive Date: 20231120
  Receipt Date: 20231120
  Transmission Date: 20240110
  Serious: Yes (Hospitalization, Other)
  Sender: FDA-Public Use
  Company Number: GR-EXELIXIS-CABO-23070462

PATIENT
  Age: 60 Year
  Sex: Male

DRUGS (4)
  1. CABOMETYX [Suspect]
     Active Substance: CABOZANTINIB S-MALATE
     Indication: Metastatic renal cell carcinoma
  2. NIFEDIPINE [Suspect]
     Active Substance: NIFEDIPINE
     Indication: Prinzmetal angina
     Dosage: 60 MG
  3. ISOSORBIDE MONONITRATE [Suspect]
     Active Substance: ISOSORBIDE MONONITRATE
     Indication: Prinzmetal angina
     Dosage: 60 MG
  4. ISOSORBIDE MONONITRATE [Suspect]
     Active Substance: ISOSORBIDE MONONITRATE
     Dosage: 30 MG

REACTIONS (8)
  - Arteriosclerosis [Unknown]
  - Prinzmetal angina [Recovered/Resolved]
  - Prinzmetal angina [Unknown]
  - Hypothyroidism [Unknown]
  - Blood pressure increased [Unknown]
  - Gingival hypertrophy [Unknown]
  - Haemorrhage [Unknown]
  - Headache [Unknown]
